FAERS Safety Report 6176561-1 (Version None)
Quarter: 2009Q2

REPORT INFORMATION
  Report Type: 
  Country: None (occurrence: None)
  Receive Date: 20090501
  Receipt Date: 20090424
  Transmission Date: 20091009
  Serious: Yes (Other)
  Sender: FDA-Public Use
  Company Number: JP-ASTRAZENECA-2009AP02879

PATIENT
  Age: 43 Year
  Sex: Male

DRUGS (2)
  1. FOSCAVIR [Suspect]
     Indication: CYTOMEGALOVIRUS INFECTION
     Dosage: DOSE UNKNOWN
     Route: 048
  2. FOSCAVIR [Suspect]
     Dosage: DOSE DILUTED
     Route: 041

REACTIONS (2)
  - CHEST DISCOMFORT [None]
  - DYSPNOEA [None]
